FAERS Safety Report 6247420-0 (Version None)
Quarter: 2009Q2

REPORT INFORMATION
  Report Type: 
  Country: None (occurrence: None)
  Receive Date: 20090626
  Receipt Date: 20090618
  Transmission Date: 20091009
  Serious: Yes (Hospitalization)
  Sender: FDA-Public Use
  Company Number: US-ROCHE-639537

PATIENT
  Sex: Male
  Weight: 79.4 kg

DRUGS (4)
  1. CAPECITABINE [Suspect]
     Route: 048
     Dates: start: 20081007
  2. CAPECITABINE [Suspect]
     Dosage: DOSE REDUCED
     Route: 048
  3. MONOPRIL [Concomitant]
  4. CARDURA [Concomitant]

REACTIONS (1)
  - BILE DUCT OBSTRUCTION [None]
